FAERS Safety Report 4759147-2 (Version None)
Quarter: 2005Q3

REPORT INFORMATION
  Report Type: 
  Country: None (occurrence: None)
  Receive Date: 20050831
  Receipt Date: 20050818
  Transmission Date: 20060218
  Serious: Yes (Hospitalization)
  Sender: FDA-Public Use
  Company Number: S05-FRA-03100-01

PATIENT
  Age: 22 Year
  Sex: Male

DRUGS (4)
  1. CITALOPRAM HYDROBROMIDE [Suspect]
     Dosage: 40 MG QD PO
     Route: 048
     Dates: start: 20050616, end: 20050725
  2. ZYPREXA [Suspect]
     Dosage: 15 MG QD PO
     Route: 048
     Dates: start: 20050617, end: 20050728
  3. VALPROATE SODIUM [Concomitant]
  4. TERCIAN (CYAMEMAZINE) [Concomitant]

REACTIONS (3)
  - BLOOD CREATINE PHOSPHOKINASE INCREASED [None]
  - GAMMA-GLUTAMYLTRANSFERASE INCREASED [None]
  - TRANSAMINASES INCREASED [None]
